FAERS Safety Report 4948758-7 (Version None)
Quarter: 2006Q1

REPORT INFORMATION
  Report Type: 
  Country: None (occurrence: None)
  Receive Date: 20060321
  Receipt Date: 20060309
  Transmission Date: 20060701
  Serious: Yes (Hospitalization)
  Sender: FDA-Public Use
  Company Number: US-JNJFOC-20060303946

PATIENT
  Sex: Male

DRUGS (1)
  1. ABCIXIMAB [Suspect]
     Indication: CORONARY ANGIOPLASTY

REACTIONS (2)
  - GASTRIC ULCER HAEMORRHAGE [None]
  - PERIPHERAL EMBOLISM [None]
